FAERS Safety Report 9386953 (Version 1)
Quarter: 2013Q3

REPORT INFORMATION
  Report Type: Spontaneous
  Country: US (occurrence: US)
  Receive Date: 20130708
  Receipt Date: 20130708
  Transmission Date: 20140515
  Serious: Yes (Other)
  Sender: FDA-Public Use
  Company Number: US-JNJFOC-20130405527

PATIENT
  Sex: Female
  Weight: 87.54 kg

DRUGS (3)
  1. REMICADE [Suspect]
     Indication: RHEUMATOID ARTHRITIS
     Route: 042
     Dates: start: 20120601, end: 20121108
  2. REMICADE [Suspect]
     Indication: RHEUMATOID ARTHRITIS
     Dosage: 400-600MG
     Route: 042
     Dates: start: 20100625, end: 201111
  3. PREDNISONE [Suspect]
     Indication: RHEUMATOID ARTHRITIS
     Dosage: 5-30MG/D
     Route: 065
     Dates: start: 20080516

REACTIONS (1)
  - Exposure during pregnancy [Recovered/Resolved]
